FAERS Safety Report 5949504-0 (Version None)
Quarter: 2008Q4

REPORT INFORMATION
  Report Type: 
  Country: None (occurrence: None)
  Receive Date: 20081112
  Receipt Date: 20081105
  Transmission Date: 20090506
  Serious: Yes (Death)
  Sender: FDA-Public Use
  Company Number: PHHY2008BR27318

PATIENT
  Sex: Male

DRUGS (4)
  1. EXELON [Suspect]
     Indication: DEMENTIA ALZHEIMER'S TYPE
     Dosage: 1.5 MG, UNK
     Dates: start: 20060101
  2. EXELON [Suspect]
     Dosage: 3 MG, 2 TABLETS A DAY
  3. HYGROTON [Suspect]
     Indication: HYPERTENSION
     Dosage: 50 MG, QD
  4. SERTRALINE [Suspect]

REACTIONS (1)
  - CEREBROVASCULAR ACCIDENT [None]
